FAERS Safety Report 9667894 (Version 1)
Quarter: 2013Q4

REPORT INFORMATION
  Report Type: Report from Study
  Country: IT (occurrence: IT)
  Receive Date: 20131104
  Receipt Date: 20131104
  Transmission Date: 20140711
  Serious: Yes (Other)
  Sender: FDA-Public Use
  Company Number: IT-SA-2013SA112339

PATIENT
  Sex: 0

DRUGS (5)
  1. FLUOROURACIL [Suspect]
     Indication: BILE DUCT CANCER
     Dosage: FORM: BOLUS?FREQUENCY: 1 TO 2 DAYS, BIWEEKLY
     Route: 040
  2. FLUOROURACIL [Suspect]
     Indication: BILE DUCT CANCER
     Dosage: FREQUENCY:  AS A 22- HOUR INFUSION FOR 1 TO 2 DAYS, BIWEEKLY
     Route: 042
  3. OXALIPLATIN [Suspect]
     Indication: BILE DUCT CANCER
     Dosage: FREQUENCY: FOR 1 DAY,  BIWEEKLY
     Route: 042
  4. FOLINIC ACID [Suspect]
     Indication: BILE DUCT CANCER
     Dosage: FREQUENCY: 1 TO 2 DAYS AS 2- HOUR INFUSION, BIWEEKLY
     Route: 042
  5. ANTIEMETICS AND ANTINAUSEANTS [Concomitant]
     Indication: PROPHYLAXIS

REACTIONS (1)
  - Bile duct stenosis [Unknown]
